FAERS Safety Report 5945798-6 (Version None)
Quarter: 2008Q4

REPORT INFORMATION
  Report Type: 
  Country: None (occurrence: None)
  Receive Date: 20081106
  Receipt Date: 20081030
  Transmission Date: 20090506
  Serious: Yes (Other)
  Sender: FDA-Public Use
  Company Number: APP200801056

PATIENT
  Age: 71 Year
  Sex: Female
  Weight: 67.1324 kg

DRUGS (2)
  1. HEPARIN SODIUM INJECTION [Suspect]
     Indication: CORONARY ARTERY BYPASS
     Dosage: 20100 USP UNITS, ONCE, INTRAVENOUS; 5000 USP UNITS, ONCE, INTRAVENOUS
     Route: 042
     Dates: start: 20081001, end: 20081001
  2. HEPARIN SODIUM INJECTION [Suspect]

REACTIONS (1)
  - DRUG INEFFECTIVE [None]
